FAERS Safety Report 24084110 (Version 1)
Quarter: 2024Q3

REPORT INFORMATION
  Report Type: Spontaneous
  Country: JP (occurrence: JP)
  Receive Date: 20240712
  Receipt Date: 20240712
  Transmission Date: 20241017
  Serious: Yes (Other)
  Sender: OTSUKA
  Company Number: JP-OTSUKA-2024_019117

PATIENT
  Sex: Male

DRUGS (2)
  1. ABILIFY [Suspect]
     Active Substance: ARIPIPRAZOLE
     Indication: Product used for unknown indication
     Dosage: 18MG/DAY
     Route: 048
  2. ZYPREXA [Suspect]
     Active Substance: OLANZAPINE
     Indication: Product used for unknown indication
     Dosage: 10MG/DAY
     Route: 048

REACTIONS (3)
  - Hyperprolactinaemia [Unknown]
  - Dystonia [Unknown]
  - Dyskinesia [Unknown]
